FAERS Safety Report 6739526-4 (Version None)
Quarter: 2010Q2

REPORT INFORMATION
  Report Type: 
  Country: None (occurrence: None)
  Receive Date: 20100525
  Receipt Date: 20100513
  Transmission Date: 20101027
  Serious: Yes (Death)
  Sender: FDA-Public Use
  Company Number: US-ELI_LILLY_AND_COMPANY-US201005003315

PATIENT
  Age: 10 Year
  Sex: Male

DRUGS (3)
  1. STRATTERA [Suspect]
     Dosage: 25 MG, UNK
  2. CONCERTA [Concomitant]
     Dosage: 1 D/F, UNK
  3. ALBUTEROL [Concomitant]

REACTIONS (1)
  - ASTHMA [None]
